FAERS Safety Report 11339945 (Version 1)
Quarter: 2015Q3

REPORT INFORMATION
  Report Type: Spontaneous
  Country: US (occurrence: None)
  Receive Date: 20150803
  Receipt Date: 20150803
  Transmission Date: 20151125
  Serious: Yes (Life-Threatening, Disabling, Other)
  Sender: FDA-Public Use
  Company Number: None

PATIENT
  Age: 60 Year
  Sex: Female
  Weight: 43.9 kg

DRUGS (4)
  1. CABOZANTINIB [Suspect]
     Active Substance: CABOZANTINIB
     Indication: LUNG ADENOCARCINOMA STAGE IV
     Route: 048
     Dates: start: 20150323, end: 20150729
  2. LEVOTHRYOXINE [Concomitant]
     Active Substance: LEVOTHYROXINE
  3. XARELTO [Concomitant]
     Active Substance: RIVAROXABAN
  4. VITAMIN B12 [Concomitant]
     Active Substance: CYANOCOBALAMIN

REACTIONS (12)
  - Weight decreased [None]
  - Dizziness [None]
  - Alanine aminotransferase increased [None]
  - Carcinoembryonic antigen increased [None]
  - Hypothyroidism [None]
  - Cerebral infarction [None]
  - Diarrhoea [None]
  - Visual impairment [None]
  - Aspartate aminotransferase increased [None]
  - Blood thyroid stimulating hormone increased [None]
  - Nausea [None]
  - Blood alkaline phosphatase increased [None]

NARRATIVE: CASE EVENT DATE: 20150730
